FAERS Safety Report 15271424 (Version 2)
Quarter: 2018Q3

REPORT INFORMATION
  Report Type: Spontaneous
  Country: BR (occurrence: BR)
  Receive Date: 20180813
  Receipt Date: 20180821
  Transmission Date: 20181010
  Serious: Yes (Hospitalization)
  Sender: FDA-Public Use
  Company Number: BR-PFIZER INC-2016366356

PATIENT
  Sex: Female

DRUGS (4)
  1. ATENOLOL. [Concomitant]
     Active Substance: ATENOLOL
     Indication: BLOOD PRESSURE ABNORMAL
     Dosage: UNK
  2. RIVOTRIL [Concomitant]
     Active Substance: CLONAZEPAM
     Indication: ANXIETY
  3. ANAFRANIL [Concomitant]
     Active Substance: CLOMIPRAMINE HYDROCHLORIDE
     Dosage: UNK
  4. FRONTAL XR [Suspect]
     Active Substance: ALPRAZOLAM
     Dosage: 1 MG, DAILY

REACTIONS (7)
  - Cardiac disorder [Unknown]
  - Gastritis [Unknown]
  - Depression [Unknown]
  - Migraine [Unknown]
  - Anxiety [Unknown]
  - Gastrointestinal disorder [Unknown]
  - Diarrhoea [Unknown]
